FAERS Safety Report 8024882-X (Version None)
Quarter: 2012Q1

REPORT INFORMATION
  Report Type: 
  Country: None (occurrence: None)
  Receive Date: 20120105
  Receipt Date: 20120105
  Transmission Date: 20120608
  Serious: Yes (Life-Threatening, Hospitalization)
  Sender: FDA-Public Use
  Company Number: US-B.I. PHARMACEUTICALS,INC./RIDGEFIELD-2009-BP-06887BP

PATIENT
  Sex: Female
  Weight: 102.5 kg

DRUGS (12)
  1. SPIRIVA [Suspect]
     Indication: EMPHYSEMA
     Route: 055
     Dates: start: 20070101
  2. CARDIZEM [Concomitant]
     Dosage: 240 MG
  3. ADVAIR DISKUS 100/50 [Concomitant]
     Indication: CHRONIC OBSTRUCTIVE PULMONARY DISEASE
  4. NITROGLYCERIN [Concomitant]
  5. FEXOFENADINE [Concomitant]
     Indication: HYPERSENSITIVITY
  6. SINGULAIR [Concomitant]
     Dosage: 10 MG
  7. ATROVENT [Concomitant]
  8. DIOVAN [Concomitant]
  9. VENTOLIN [Concomitant]
  10. SPIRIVA [Suspect]
     Indication: CHRONIC OBSTRUCTIVE PULMONARY DISEASE
  11. RESTASIS [Concomitant]
  12. ASPIRIN [Concomitant]
     Dosage: 81 MG

REACTIONS (5)
  - PHLEBITIS [None]
  - PULMONARY EMBOLISM [None]
  - BLADDER PROLAPSE [None]
  - DRY MOUTH [None]
  - EYE PAIN [None]
